FAERS Safety Report 15091703 (Version 1)
Quarter: 2018Q2

REPORT INFORMATION
  Report Type: Report from Study
  Country: US (occurrence: US)
  Receive Date: 20180629
  Receipt Date: 20180629
  Transmission Date: 20180711
  Serious: No
  Sender: FDA-Public Use
  Company Number: US-AMGEN-USASP2011026055

PATIENT
  Sex: Female

DRUGS (14)
  1. METOPROLOL. [Concomitant]
     Active Substance: METOPROLOL
  2. PERCOCET                           /00446701/ [Concomitant]
     Active Substance: ACETAMINOPHEN\OXYCODONE HYDROCHLORIDE\OXYCODONE TEREPHTHALATE
  3. CALCIUM [Concomitant]
     Active Substance: CALCIUM
  4. CENTRUM                            /00554501/ [Concomitant]
     Active Substance: VITAMINS
  5. PROLIA [Suspect]
     Active Substance: DENOSUMAB
     Dosage: 60 MG, Q6MO
     Dates: start: 201101
  6. FOLIC ACID. [Concomitant]
     Active Substance: FOLIC ACID
  7. LIPITOR [Concomitant]
     Active Substance: ATORVASTATIN CALCIUM
  8. KLONOPIN [Concomitant]
     Active Substance: CLONAZEPAM
  9. CITRACAL                           /00471001/ [Concomitant]
  10. RESTORIL [Concomitant]
     Active Substance: TEMAZEPAM
  11. BABY ASPIRIN [Concomitant]
     Active Substance: ASPIRIN
  12. VITAMIN D                          /00107901/ [Concomitant]
     Active Substance: ERGOCALCIFEROL
  13. ANTIHYPERTENSIVES [Concomitant]
     Active Substance: UNSPECIFIED INGREDIENT
  14. NORCO [Concomitant]
     Active Substance: ACETAMINOPHEN\HYDROCODONE BITARTRATE

REACTIONS (1)
  - Rectal discharge [Not Recovered/Not Resolved]

NARRATIVE: CASE EVENT DATE: 201101
